FAERS Safety Report 21561247 (Version 2)
Quarter: 2022Q4

REPORT INFORMATION
  Report Type: Spontaneous
  Country: IT (occurrence: IT)
  Receive Date: 20221107
  Receipt Date: 20221212
  Transmission Date: 20230112
  Serious: Yes (Other)
  Sender: FDA-Public Use
  Company Number: IT-BAYER-2022A153508

PATIENT
  Age: 41 Year
  Sex: Female

DRUGS (1)
  1. DIENOGEST\ETHINYL ESTRADIOL [Suspect]
     Active Substance: DIENOGEST\ETHINYL ESTRADIOL
     Indication: Ovarian cyst
     Dosage: UNK
     Route: 048

REACTIONS (3)
  - Apnoea [None]
  - Lip swelling [None]
  - Off label use [None]
